FAERS Safety Report 13674673 (Version 1)
Quarter: 2017Q2

REPORT INFORMATION
  Report Type: Spontaneous
  Country: FR (occurrence: FR)
  Receive Date: 20170621
  Receipt Date: 20170621
  Transmission Date: 20170830
  Serious: Yes (Other)
  Sender: FDA-Public Use
  Company Number: FR-ROCHE-1951867

PATIENT
  Age: 54 Year
  Sex: Male

DRUGS (11)
  1. VALIUM [Suspect]
     Active Substance: DIAZEPAM
     Indication: PSYCHOTIC DISORDER
     Route: 048
  2. MECIR [Suspect]
     Active Substance: TAMSULOSIN HYDROCHLORIDE
     Indication: URINARY RETENTION
     Dosage: MECIR L P 0.4 MG
     Route: 048
     Dates: start: 20161125, end: 20161224
  3. DIPIPERON [Suspect]
     Active Substance: PIPAMPERONE
     Indication: PSYCHOTIC DISORDER
     Dosage: DIPIPERON 40 MG
     Route: 048
  4. UROREC [Suspect]
     Active Substance: SILODOSIN
     Indication: URINARY RETENTION
     Dosage: UROREC 8 MG
     Route: 048
     Dates: start: 20170105
  5. KARDEGIC [Concomitant]
     Active Substance: ASPIRIN LYSINE
  6. DEPAKOTE [Suspect]
     Active Substance: DIVALPROEX SODIUM
     Indication: PSYCHOTIC DISORDER
     Dosage: DEPAKOTE 250 MG
     Route: 048
  7. NOZINAN [Suspect]
     Active Substance: LEVOMEPROMAZINE
     Indication: PSYCHOTIC DISORDER
     Dosage: NOZINAN 100 MG
     Route: 048
  8. COLOPEG [Concomitant]
     Active Substance: POLYETHYLENE GLYCOL 3350\POTASSIUM CHLORIDE\SODIUM BICARBONATE\SODIUM CHLORIDE\SODIUM SULFATE
  9. STILNOX [Suspect]
     Active Substance: ZOLPIDEM TARTRATE
     Indication: PSYCHOTIC DISORDER
     Dosage: STILNOX 10 MG
     Route: 048
  10. LEPTICUR [Suspect]
     Active Substance: TROPATEPINE HYDROCHLORIDE
     Indication: PSYCHOTIC DISORDER
     Dosage: LEPTICUR 10 MG
     Route: 048
  11. XATRAL [Concomitant]
     Active Substance: ALFUZOSIN

REACTIONS (2)
  - Fall [Unknown]
  - Orthostatic hypotension [Unknown]

NARRATIVE: CASE EVENT DATE: 201612
